FAERS Safety Report 8485112-8 (Version None)
Quarter: 2012Q3

REPORT INFORMATION
  Report Type: 
  Country: None (occurrence: None)
  Receive Date: 20120703
  Receipt Date: 20120625
  Transmission Date: 20120928
  Serious: Yes (Hospitalization)
  Sender: FDA-Public Use
  Company Number: DE-PFIZER INC-2012150357

PATIENT
  Age: 75 Year
  Sex: Male
  Weight: 80 kg

DRUGS (9)
  1. CYCLOSPORINE [Suspect]
     Indication: IMMUNOSUPPRESSION
     Dosage: UNK
     Dates: start: 20071109
  2. CELLCEPT [Suspect]
     Indication: IMMUNOSUPPRESSION
     Dosage: UNK
  3. PANTOPRAZOLE [Concomitant]
     Indication: PROPHYLAXIS AGAINST GASTROINTESTINAL ULCER
     Dosage: UNK
     Dates: start: 20071109
  4. MOXONIDINE [Suspect]
     Indication: HYPERTENSION
     Dosage: UNK
  5. PROTAPHANE HM [Concomitant]
     Indication: DIABETES MELLITUS
     Dosage: UNK
  6. SIROLIMUS [Suspect]
     Indication: PROPHYLAXIS AGAINST TRANSPLANT REJECTION
     Dosage: UNK
     Dates: start: 20080210
  7. ALT-INSULIN [Concomitant]
     Indication: DIABETES MELLITUS
     Dosage: UNK
  8. HYDROCHLOROTHIAZIDE [Concomitant]
     Indication: RENAL FAILURE
     Dosage: UNK
  9. RAMIPRIL [Suspect]
     Indication: HYPERTENSION
     Dosage: UNK

REACTIONS (1)
  - HEPATIC NEOPLASM MALIGNANT RECURRENT [None]
